FAERS Safety Report 11434482 (Version 4)
Quarter: 2016Q2

REPORT INFORMATION
  Report Type: Report from Study
  Country: JP (occurrence: JP)
  Receive Date: 20150831
  Receipt Date: 20160414
  Transmission Date: 20160815
  Serious: Yes (Death, Life-Threatening, Hospitalization)
  Sender: FDA-Public Use
  Company Number: JP-ACTELION-A-CH2015-122905

PATIENT
  Age: 42 Year
  Sex: Female

DRUGS (19)
  1. SODIUM RABEPRAZOLE [Concomitant]
     Active Substance: RABEPRAZOLE SODIUM
  2. METOCLOPRAMIDE. [Concomitant]
     Active Substance: METOCLOPRAMIDE
  3. TORASEMIDE [Concomitant]
     Active Substance: TORSEMIDE
  4. CEFAZOLIN [Suspect]
     Active Substance: CEFAZOLIN
     Indication: DEVICE RELATED INFECTION
     Dosage: 4 G, UNK
     Route: 042
     Dates: start: 20141009, end: 20141021
  5. FLUTICASONE PROPIONATE\SALMETEROL XINAFOATE [Concomitant]
     Active Substance: FLUTICASONE PROPIONATE\SALMETEROL XINAFOATE
  6. DIMETICONE [Concomitant]
     Active Substance: DIMETHICONE
  7. TRACLEER [Suspect]
     Active Substance: BOSENTAN
     Indication: PULMONARY ARTERIAL HYPERTENSION
     Route: 048
  8. TADALAFIL [Concomitant]
     Active Substance: TADALAFIL
  9. CARBOCISTEINE [Concomitant]
     Active Substance: CARBOCYSTEINE
  10. POTASSIUM CHLORIDE. [Concomitant]
     Active Substance: POTASSIUM CHLORIDE
  11. ZOLPIDEM TARTATE [Concomitant]
     Active Substance: ZOLPIDEM TARTRATE
  12. CLOTIAZEPAM [Concomitant]
     Active Substance: CLOTIAZEPAM
  13. CLOSTRIDIUM BUTYRICUM [Concomitant]
     Active Substance: CLOSTRIDIUM BUTYRICUM SPORES STRAIN M-55
  14. VELETRI [Suspect]
     Active Substance: EPOPROSTENOL
     Indication: PULMONARY ARTERIAL HYPERTENSION
     Dosage: 93.4 NG/KG, PER MIN
     Route: 042
     Dates: start: 20140806
  15. VELETRI [Suspect]
     Active Substance: EPOPROSTENOL
     Dosage: 90.9 NG/KG, PER MIN
     Route: 042
     Dates: end: 20141125
  16. FUROSEMIDE. [Concomitant]
     Active Substance: FUROSEMIDE
  17. AZOSEMIDE [Concomitant]
     Active Substance: AZOSEMIDE
  18. MONTELUKAST [Concomitant]
     Active Substance: MONTELUKAST SODIUM
  19. OXYGEN. [Concomitant]
     Active Substance: OXYGEN

REACTIONS (18)
  - Depression [Not Recovered/Not Resolved]
  - Aggression [Not Recovered/Not Resolved]
  - Flushing [Unknown]
  - Hypercalcaemia [Not Recovered/Not Resolved]
  - Restlessness [Not Recovered/Not Resolved]
  - Concomitant disease aggravated [Fatal]
  - Device related infection [Recovered/Resolved]
  - Pyrexia [Recovered/Resolved]
  - Arthralgia [Unknown]
  - Anaemia [Not Recovered/Not Resolved]
  - Gamma-glutamyltransferase increased [Recovering/Resolving]
  - Delirium [Not Recovered/Not Resolved]
  - Right ventricular failure [Fatal]
  - Atrial flutter [Fatal]
  - Thyrotoxic crisis [Fatal]
  - Cardio-respiratory arrest [Fatal]
  - Hepatic function abnormal [Recovering/Resolving]
  - Blood parathyroid hormone abnormal [Fatal]

NARRATIVE: CASE EVENT DATE: 201408
